FAERS Safety Report 6123133-0 (Version None)
Quarter: 2009Q1

REPORT INFORMATION
  Report Type: 
  Country: None (occurrence: None)
  Receive Date: 20090318
  Receipt Date: 20090310
  Transmission Date: 20090719
  Serious: Yes (Hospitalization, Other)
  Sender: FDA-Public Use
  Company Number: US-ELI_LILLY_AND_COMPANY-US200903002814

PATIENT
  Sex: Male

DRUGS (1)
  1. HUMALOG MIX 50/50 [Suspect]

REACTIONS (8)
  - BLINDNESS UNILATERAL [None]
  - BLOOD GLUCOSE DECREASED [None]
  - CORNEAL TRANSPLANT [None]
  - EYE HAEMORRHAGE [None]
  - EYE INFECTION [None]
  - REHABILITATION THERAPY [None]
  - RETINITIS HISTOPLASMA [None]
  - VISUAL ACUITY REDUCED [None]
